FAERS Safety Report 8073579-9 (Version None)
Quarter: 2012Q1

REPORT INFORMATION
  Report Type: 
  Country: None (occurrence: None)
  Receive Date: 20120126
  Receipt Date: 20120117
  Transmission Date: 20120608
  Serious: Yes (Hospitalization)
  Sender: FDA-Public Use
  Company Number: US-BAYER-2011-082093

PATIENT
  Age: 24 Year
  Sex: Female
  Weight: 59 kg

DRUGS (6)
  1. MAXALT [Concomitant]
     Dosage: UNK
     Dates: start: 20100101
  2. CELEXA [Concomitant]
     Dosage: 40 MG, QD
     Route: 048
  3. ZANTAC [Concomitant]
     Dosage: 150 MG, BID
     Route: 048
  4. YASMIN [Suspect]
     Indication: CONTRACEPTION
     Dosage: UNK
     Dates: start: 20061001, end: 20100401
  5. ADDERALL XR 10 [Concomitant]
     Dosage: 10 MG, UNK
     Route: 048
  6. YAZ [Suspect]
     Indication: CONTRACEPTION
     Dosage: UNK
     Dates: start: 20061001, end: 20100401

REACTIONS (3)
  - INJURY [None]
  - PULMONARY EMBOLISM [None]
  - PAIN [None]
